FAERS Safety Report 4837667-X (Version None)
Quarter: 2005Q4

REPORT INFORMATION
  Report Type: 
  Country: None (occurrence: None)
  Receive Date: 20051128
  Receipt Date: 20051004
  Transmission Date: 20060501
  Serious: Yes (Hospitalization, Disabling, Other)
  Sender: FDA-Public Use
  Company Number: US-MERCK-0510USA02222

PATIENT
  Age: 55 Year
  Sex: Male
  Weight: 91 kg

DRUGS (17)
  1. VIOXX [Suspect]
     Indication: MUSCULOSKELETAL DISCOMFORT
     Route: 048
     Dates: start: 20020901, end: 20041001
  2. VIOXX [Suspect]
     Route: 048
     Dates: start: 20020901, end: 20041001
  3. TIZANIDINE HYDROCHLORIDE [Concomitant]
     Route: 065
  4. DOXEPIN HYDROCHLORIDE [Concomitant]
     Route: 065
  5. OMEPRAZOLE [Concomitant]
     Route: 065
  6. ATENOLOL [Concomitant]
     Route: 065
  7. TRICOR [Concomitant]
     Route: 065
  8. LIPITOR [Concomitant]
     Route: 065
  9. AMOXICILLIN [Concomitant]
     Route: 065
  10. NEXIUM [Concomitant]
     Route: 065
  11. ACETAMINOPHEN AND CODEINE PHOSPHATE [Concomitant]
     Route: 065
  12. LEXAPRO [Concomitant]
     Route: 065
  13. SYNTHROID [Concomitant]
     Route: 065
  14. HYDROCODONE BITARTRATE [Concomitant]
     Route: 065
  15. NITROGLYCERIN [Concomitant]
     Route: 065
  16. ISOSORBIDE MONONITRATE [Concomitant]
     Route: 065
  17. PLAVIX [Concomitant]
     Route: 065

REACTIONS (14)
  - ACQUIRED OESOPHAGEAL WEB [None]
  - ANAEMIA [None]
  - CARDIOMEGALY [None]
  - CARPAL TUNNEL SYNDROME [None]
  - CEREBROVASCULAR ACCIDENT [None]
  - CHEST PAIN [None]
  - COELIAC DISEASE [None]
  - DYSPNOEA [None]
  - GASTRIC ULCER HELICOBACTER [None]
  - GASTRITIS EROSIVE [None]
  - HYPERTENSION [None]
  - IRON DEFICIENCY ANAEMIA [None]
  - ISCHAEMIC CEREBRAL INFARCTION [None]
  - MIGRAINE [None]
